FAERS Safety Report 10944636 (Version 2)
Quarter: 2015Q2

REPORT INFORMATION
  Report Type: Spontaneous
  Country: US (occurrence: US)
  Receive Date: 20150323
  Receipt Date: 20150403
  Transmission Date: 20150821
  Serious: No
  Sender: FDA-Public Use
  Company Number: US-PFIZER INC-2015097413

PATIENT
  Age: 67 Year
  Sex: Female
  Weight: 109 kg

DRUGS (2)
  1. LYRICA [Suspect]
     Active Substance: PREGABALIN
     Indication: NEURALGIA
     Dosage: 800 MG, UNK
  2. LYRICA [Suspect]
     Active Substance: PREGABALIN
     Dosage: BETWEEN 400 MG AND 600 MG

REACTIONS (5)
  - Tremor [Recovering/Resolving]
  - Fall [Unknown]
  - Memory impairment [Unknown]
  - Wound [Recovered/Resolved]
  - Dyskinesia [Recovering/Resolving]
